FAERS Safety Report 23814491 (Version 1)
Quarter: 2024Q2

REPORT INFORMATION
  Report Type: Report from Study
  Country: US (occurrence: US)
  Receive Date: 20240503
  Receipt Date: 20240503
  Transmission Date: 20240716
  Serious: Yes (Other)
  Sender: FDA-Public Use
  Company Number: US-ABBVIE-5742456

PATIENT
  Age: 76 Year
  Sex: Female

DRUGS (2)
  1. SKYRIZI [Suspect]
     Active Substance: RISANKIZUMAB-RZAA
     Indication: Crohn^s disease
     Route: 058
     Dates: start: 20240401
  2. BUDESONIDE [Concomitant]
     Active Substance: BUDESONIDE
     Indication: Product used for unknown indication

REACTIONS (5)
  - Back disorder [Unknown]
  - Burning sensation [Unknown]
  - Cough [Unknown]
  - Hypersensitivity [Unknown]
  - Pain [Unknown]

NARRATIVE: CASE EVENT DATE: 20240401
